FAERS Safety Report 4985957-2 (Version None)
Quarter: 2006Q2

REPORT INFORMATION
  Report Type: 
  Country: None (occurrence: None)
  Receive Date: 20060421
  Receipt Date: 20060413
  Transmission Date: 20061013
  Serious: Yes (Hospitalization)
  Sender: FDA-Public Use
  Company Number: 2006-04-0044

PATIENT
  Age: 65 Year
  Sex: Male

DRUGS (10)
  1. AERIUS          (DESLORATADINE) [Suspect]
     Dosage: 1 QD
  2. FLUDEX [Suspect]
     Dosage: 1 QD
  3. GLUCOPHAGE [Suspect]
     Dosage: 2 QD
  4. TENORDATE     (NIFEDIPINE/ATENOLOL) [Suspect]
     Dosage: 1 QD
  5. ATORVASTATIN CALCIUM [Suspect]
     Dosage: 1 QD
  6. NEXIUM [Suspect]
     Dosage: 1 QD
  7. IKOREL (NICORANDIL) [Concomitant]
  8. PLAVIX [Concomitant]
  9. TAMSULOSIN HCL [Concomitant]
  10. INSULIN ASPART [Concomitant]

REACTIONS (1)
  - HEPATITIS CHOLESTATIC [None]
